FAERS Safety Report 9841533 (Version 1)
Quarter: 2014Q1

REPORT INFORMATION
  Report Type: Spontaneous
  Country: CO (occurrence: CO)
  Receive Date: 20140124
  Receipt Date: 20140124
  Transmission Date: 20141002
  Serious: Yes (Death)
  Sender: FDA-Public Use
  Company Number: CO-PFIZER INC-2014019643

PATIENT
  Age: 76 Year
  Sex: Female

DRUGS (1)
  1. XALATAN [Suspect]
     Dosage: 2.5 ML, UNK
     Route: 047

REACTIONS (1)
  - Pancreatic disorder [Fatal]
